FAERS Safety Report 9030508 (Version 2)
Quarter: 2013Q1

REPORT INFORMATION
  Report Type: Report from Study
  Country: GB (occurrence: GB)
  Receive Date: 20130122
  Receipt Date: 20130307
  Transmission Date: 20140127
  Serious: Yes (Death)
  Sender: FDA-Public Use
  Company Number: GB-AMGEN-GBRCT2013003653

PATIENT
  Age: 81 Year
  Sex: Female
  Weight: 81 kg

DRUGS (2)
  1. ETANERCEPT [Suspect]
     Indication: RHEUMATOID ARTHRITIS
     Dosage: 25 MG, 2 TIMES/WK
     Dates: start: 20050311
  2. METHOTREXATE [Concomitant]
     Dosage: UNK

REACTIONS (4)
  - Iliac artery occlusion [Fatal]
  - Renal failure acute [Fatal]
  - Embolism arterial [Fatal]
  - Sepsis [Fatal]
